FAERS Safety Report 17480562 (Version 1)
Quarter: 2020Q1

REPORT INFORMATION
  Report Type: Spontaneous
  Country: HU (occurrence: HU)
  Receive Date: 20200301
  Receipt Date: 20200301
  Transmission Date: 20200409
  Serious: Yes (Death, Hospitalization, Other)
  Sender: FDA-Public Use
  Company Number: NVSC2020HU056335

PATIENT
  Sex: Male

DRUGS (15)
  1. IMATINIB. [Suspect]
     Active Substance: IMATINIB MESYLATE
     Dosage: 600 MG, QD
     Route: 065
     Dates: start: 20080630
  2. DASATINIB. [Concomitant]
     Active Substance: DASATINIB
     Indication: PRODUCT USED FOR UNKNOWN INDICATION
     Dosage: 70 MG, QD
     Route: 065
     Dates: start: 20080915
  3. DASATINIB. [Concomitant]
     Active Substance: DASATINIB
     Dosage: 70 MG, QD
     Route: 065
     Dates: start: 20090119
  4. IMATINIB. [Suspect]
     Active Substance: IMATINIB MESYLATE
     Indication: PRODUCT USED FOR UNKNOWN INDICATION
     Dosage: UNK
     Route: 065
     Dates: start: 2003
  5. NILOTINIB [Suspect]
     Active Substance: NILOTINIB
     Dosage: 400 MG, BID
     Route: 065
     Dates: start: 20091116
  6. NILOTINIB [Suspect]
     Active Substance: NILOTINIB
     Dosage: 150 MG, QD
     Route: 065
     Dates: start: 20200110
  7. NILOTINIB [Suspect]
     Active Substance: NILOTINIB
     Dosage: 300 MG, QD
     Route: 065
  8. DASATINIB. [Concomitant]
     Active Substance: DASATINIB
     Dosage: 70 MG, BID
     Route: 065
  9. DASATINIB. [Concomitant]
     Active Substance: DASATINIB
     Dosage: 50 MG, QD
     Route: 065
     Dates: start: 20090406
  10. CILOSTAZOL. [Concomitant]
     Active Substance: CILOSTAZOL
     Indication: PRODUCT USED FOR UNKNOWN INDICATION
     Route: 065
  11. NILOTINIB [Suspect]
     Active Substance: NILOTINIB
     Dosage: 300 MG, BID
     Route: 065
     Dates: start: 20160613
  12. HIDROXYUREA [Concomitant]
     Indication: PRODUCT USED FOR UNKNOWN INDICATION
     Route: 065
  13. ACENOCOUMAROL [Concomitant]
     Active Substance: ACENOCOUMAROL
     Indication: PRODUCT USED FOR UNKNOWN INDICATION
     Route: 065
  14. NILOTINIB [Suspect]
     Active Substance: NILOTINIB
     Indication: PRODUCT USED FOR UNKNOWN INDICATION
     Dosage: 400 MG, QD
     Route: 065
     Dates: start: 20090629
  15. DASATINIB. [Concomitant]
     Active Substance: DASATINIB
     Dosage: 100 MG, QD
     Route: 065

REACTIONS (21)
  - Cytopenia [Unknown]
  - Sickle cell anaemia with crisis [Unknown]
  - Osteomyelitis [Unknown]
  - Condition aggravated [Unknown]
  - Arterial occlusive disease [Unknown]
  - Peripheral artery occlusion [Unknown]
  - Philadelphia chromosome positive [Unknown]
  - Thrombocytopenia [Unknown]
  - Arterial occlusive disease [Unknown]
  - Drug ineffective [Unknown]
  - Death [Fatal]
  - Diabetic vascular disorder [Unknown]
  - Anaemia [Recovered/Resolved]
  - Pancytopenia [Unknown]
  - Confusional state [Recovered/Resolved]
  - Cardiac failure [Unknown]
  - Atrial fibrillation [Unknown]
  - Cytogenetic analysis abnormal [Unknown]
  - Skin necrosis [Unknown]
  - Dyspnoea [Recovered/Resolved]
  - Hydrothorax [Unknown]

NARRATIVE: CASE EVENT DATE: 200901
